FAERS Safety Report 6974195-X (Version None)
Quarter: 2010Q3

REPORT INFORMATION
  Report Type: 
  Country: None (occurrence: None)
  Receive Date: 20100909
  Receipt Date: 20100830
  Transmission Date: 20110219
  Serious: Yes (Hospitalization)
  Sender: FDA-Public Use
  Company Number: US-BAXTER-2010BH021748

PATIENT
  Age: 42 Year
  Sex: Male

DRUGS (2)
  1. DIANEAL [Suspect]
     Indication: PERITONEAL DIALYSIS
     Route: 033
     Dates: start: 20100501, end: 20100814
  2. PAIN MEDICATION [Concomitant]
     Indication: PAIN
     Route: 065

REACTIONS (3)
  - BLOOD CREATINE ABNORMAL [None]
  - BLOOD POTASSIUM ABNORMAL [None]
  - PAIN IN EXTREMITY [None]
